FAERS Safety Report 19456940 (Version 1)
Quarter: 2021Q2

REPORT INFORMATION
  Report Type: Spontaneous
  Country: US (occurrence: US)
  Receive Date: 20210624
  Receipt Date: 20210624
  Transmission Date: 20210717
  Serious: Yes (Hospitalization)
  Sender: FDA-Public Use
  Company Number: US-ASTRAZENECA-2021A545450

PATIENT
  Age: 1097 Month
  Sex: Female
  Weight: 50.3 kg

DRUGS (1)
  1. TAGRISSO [Suspect]
     Active Substance: OSIMERTINIB
     Indication: LUNG CANCER METASTATIC
     Route: 048
     Dates: start: 202005, end: 20210617

REACTIONS (7)
  - Ejection fraction decreased [Unknown]
  - Pancreatitis [Recovered/Resolved]
  - Electrolyte imbalance [Unknown]
  - Fluid retention [Unknown]
  - Dehydration [Recovered/Resolved]
  - Cardiac failure congestive [Not Recovered/Not Resolved]
  - Weight decreased [Unknown]

NARRATIVE: CASE EVENT DATE: 202103
